FAERS Safety Report 12632418 (Version 2)
Quarter: 2016Q3

REPORT INFORMATION
  Report Type: Spontaneous
  Country: US (occurrence: US)
  Receive Date: 20160808
  Receipt Date: 20160808
  Transmission Date: 20161109
  Serious: No
  Sender: FDA-Public Use
  Company Number: US-BEH-2016062804

PATIENT
  Sex: Female
  Weight: 85 kg

DRUGS (18)
  1. PSEUDOEPHEDRINE [Concomitant]
     Active Substance: PSEUDOEPHEDRINE
  2. VITAMIN D [Concomitant]
     Active Substance: CHOLECALCIFEROL
  3. HIZENTRA [Suspect]
     Active Substance: HUMAN IMMUNOGLOBULIN G
     Indication: SELECTIVE IGG SUBCLASS DEFICIENCY
     Route: 058
  4. LIDOCAINE/PRILOCAINE [Concomitant]
     Active Substance: LIDOCAINE\PRILOCAINE
  5. DIOVAN [Concomitant]
     Active Substance: VALSARTAN
  6. VITAMIN B12 [Concomitant]
     Active Substance: CYANOCOBALAMIN
  7. EPIPEN [Concomitant]
     Active Substance: EPINEPHRINE
  8. L-M-X [Concomitant]
  9. FLONASE [Concomitant]
     Active Substance: FLUTICASONE PROPIONATE
  10. BUTALBITAL-ACETAMINOPHEN-CAFFE [Concomitant]
  11. PULMICORT TURBUHALER [Concomitant]
     Active Substance: BUDESONIDE
  12. BYSTOLIC [Concomitant]
     Active Substance: NEBIVOLOL HYDROCHLORIDE
  13. SPIRIVA [Concomitant]
     Active Substance: TIOTROPIUM BROMIDE MONOHYDRATE
  14. FISH OIL [Concomitant]
     Active Substance: FISH OIL
  15. DIPHENHYDRAMINE. [Concomitant]
     Active Substance: DIPHENHYDRAMINE
  16. XOPENEX [Concomitant]
     Active Substance: LEVALBUTEROL HYDROCHLORIDE
  17. PROAIR RESPICLICK [Concomitant]
     Active Substance: ALBUTEROL SULFATE
  18. ACETAMINOPHEN. [Concomitant]
     Active Substance: ACETAMINOPHEN

REACTIONS (2)
  - Headache [Unknown]
  - Bronchitis [Unknown]
